FAERS Safety Report 8470344-5 (Version None)
Quarter: 2012Q2

REPORT INFORMATION
  Report Type: 
  Country: None (occurrence: None)
  Receive Date: 20120627
  Receipt Date: 20120619
  Transmission Date: 20120825
  Serious: No
  Sender: FDA-Public Use
  Company Number: US-PFIZER INC-2012147697

PATIENT
  Age: 45 Year
  Sex: Female

DRUGS (2)
  1. TOVIAZ [Suspect]
     Indication: HYPERTONIC BLADDER
     Dosage: 4 MG, 1X/DAY
  2. TOVIAZ [Suspect]
     Indication: BLADDER IRRITATION

REACTIONS (3)
  - TREMOR [None]
  - PARAESTHESIA ORAL [None]
  - PALPITATIONS [None]
